FAERS Safety Report 6189339-X (Version None)
Quarter: 2009Q2

REPORT INFORMATION
  Report Type: 
  Country: None (occurrence: None)
  Receive Date: 20090512
  Receipt Date: 20090422
  Transmission Date: 20091009
  Serious: Yes (Life-Threatening, Hospitalization, Other)
  Sender: FDA-Public Use
  Company Number: ADE# 09-147DPR

PATIENT
  Age: 85 Year
  Sex: Female

DRUGS (9)
  1. DIGOXIN [Suspect]
     Indication: ATRIAL FIBRILLATION
     Dosage: 2 YEARS AGO
  2. LISINOPRIL [Concomitant]
  3. COREG [Concomitant]
  4. SPRIRONOLACTONE [Concomitant]
  5. GLYBURIDE [Concomitant]
  6. METFORMIN HCL [Concomitant]
  7. SIMVASTATIN [Concomitant]
  8. WARFARIN SODIUM [Concomitant]
  9. FUROSEMIDE [Concomitant]

REACTIONS (9)
  - ABASIA [None]
  - ADVERSE DRUG REACTION [None]
  - ASTHENIA [None]
  - CORONARY ARTERY OCCLUSION [None]
  - GASTRIC INFECTION [None]
  - HEART RATE INCREASED [None]
  - MALAISE [None]
  - PULSE ABNORMAL [None]
  - THERAPEUTIC AGENT TOXICITY [None]
